FAERS Safety Report 6587489-7 (Version None)
Quarter: 2010Q1

REPORT INFORMATION
  Report Type: 
  Country: None (occurrence: None)
  Receive Date: 20100204
  Receipt Date: 20100118
  Transmission Date: 20100710
  Serious: Yes (Death)
  Sender: FDA-Public Use
  Company Number: IMP_04862_2010

PATIENT
  Age: 12 Year
  Sex: Male

DRUGS (5)
  1. ALPRAZOLAM [Suspect]
     Indication: DRUG USE FOR UNKNOWN INDICATION
     Dosage: DF ORAL
     Route: 048
  2. METHADONE [Suspect]
     Indication: DRUG USE FOR UNKNOWN INDICATION
     Dosage: DF
  3. MARIJUANA [Suspect]
     Indication: DRUG USE FOR UNKNOWN INDICATION
     Dosage: DG
  4. AMPHETAMINE/DEXTROAMPEHTAMINE [Concomitant]
  5. ATOMOXETINE HCL [Concomitant]

REACTIONS (32)
  - ABNORMAL BEHAVIOUR [None]
  - ALANINE AMINOTRANSFERASE INCREASED [None]
  - APNOEA [None]
  - ASPARTATE AMINOTRANSFERASE INCREASED [None]
  - BLOOD BICARBONATE DECREASED [None]
  - BLOOD BILIRUBIN INCREASED [None]
  - BLOOD CALCIUM DECREASED [None]
  - BLOOD CREATINE INCREASED [None]
  - BLOOD CREATINE PHOSPHOKINASE MB [None]
  - BLOOD GLUCOSE INCREASED [None]
  - BLOOD PH DECREASED [None]
  - BLOOD POTASSIUM INCREASED [None]
  - BLOOD SODIUM INCREASED [None]
  - BLOOD UREA INCREASED [None]
  - BRAIN DEATH [None]
  - CARDIAC ARREST [None]
  - CARDIAC DISORDER [None]
  - DRUG ABUSE [None]
  - DRUG TOXICITY [None]
  - HEART RATE INCREASED [None]
  - HYPOTENSION [None]
  - INTERNATIONAL NORMALISED RATIO INCREASED [None]
  - MYOGLOBIN BLOOD INCREASED [None]
  - NO THERAPEUTIC RESPONSE [None]
  - PCO2 INCREASED [None]
  - PO2 DECREASED [None]
  - PO2 INCREASED [None]
  - POISONING [None]
  - PULSE ABSENT [None]
  - RESPIRATORY ARREST [None]
  - TROPONIN INCREASED [None]
  - UNRESPONSIVE TO STIMULI [None]
